FAERS Safety Report 5657148-3 (Version None)
Quarter: 2008Q1

REPORT INFORMATION
  Report Type: 
  Country: None (occurrence: None)
  Receive Date: 20080310
  Receipt Date: 20080228
  Transmission Date: 20080703
  Serious: Yes (Hospitalization, Other)
  Sender: FDA-Public Use
  Company Number: US-MERCK-0706USA02111

PATIENT
  Age: 61 Year
  Sex: Female

DRUGS (4)
  1. FOSAMAX [Suspect]
     Indication: OSTEOPOROSIS
     Route: 048
     Dates: start: 20000107, end: 20060415
  2. PLENDIL [Concomitant]
     Indication: HYPERTENSION
     Route: 065
     Dates: start: 19730101
  3. TOPROL-XL [Concomitant]
     Indication: HYPERTENSION
     Route: 065
     Dates: start: 19730101
  4. DIURETIC (UNSPECIFIED) [Concomitant]
     Indication: HYPERTENSION
     Route: 065
     Dates: start: 19730101

REACTIONS (8)
  - ANEURYSM [None]
  - ASTHMA [None]
  - LUNG NEOPLASM MALIGNANT [None]
  - MITRAL VALVE INCOMPETENCE [None]
  - OSTEONECROSIS [None]
  - PAIN [None]
  - SWELLING [None]
  - TOOTH LOSS [None]
